FAERS Safety Report 8969480 (Version 3)
Quarter: 2015Q1

REPORT INFORMATION
  Report Type: Spontaneous
  Country: US (occurrence: US)
  Receive Date: 20121218
  Receipt Date: 20150305
  Transmission Date: 20150721
  Serious: Yes (Congenital Anomaly, Other)
  Sender: FDA-Public Use
  Company Number: US-ELI_LILLY_AND_COMPANY-US201212002605

PATIENT

DRUGS (14)
  1. NOVOLIN N [Concomitant]
     Active Substance: INSULIN HUMAN
     Dosage: 20 U, EACH MORNING
     Route: 064
     Dates: start: 19970517
  2. NOVOLIN N [Concomitant]
     Active Substance: INSULIN HUMAN
     Dosage: 18 U, BEFORE SUPPER
     Route: 064
     Dates: start: 19970517
  3. NOVOLIN R [Concomitant]
     Active Substance: INSULIN HUMAN
     Dosage: 25 U, BID
     Dates: start: 19970517
  4. NOVOLIN N [Concomitant]
     Active Substance: INSULIN HUMAN
     Dosage: 38 U, EACH EVENING
     Route: 064
     Dates: start: 19970121
  5. NOVOLIN R [Concomitant]
     Active Substance: INSULIN HUMAN
     Dosage: 12 U, EACH MORNING
     Route: 064
     Dates: start: 19970428
  6. NOVOLIN R [Concomitant]
     Active Substance: INSULIN HUMAN
     Dosage: 10 U, EACH EVENING
     Route: 064
     Dates: start: 19970428
  7. NOVOLIN N [Concomitant]
     Active Substance: INSULIN HUMAN
     Dosage: 82 U, EACH EVENING
     Route: 064
     Dates: start: 19970517
  8. NOVOLIN R [Concomitant]
     Active Substance: INSULIN HUMAN
     Dosage: 18 U, EACH EVENING
     Route: 064
     Dates: start: 19970517
  9. PROZAC [Suspect]
     Active Substance: FLUOXETINE HYDROCHLORIDE
     Indication: DEPRESSION
     Dosage: UNK, UNKNOWN
     Route: 064
  10. NOVOLIN N [Concomitant]
     Active Substance: INSULIN HUMAN
     Dosage: 72 U, EACH EVENING
     Route: 064
     Dates: start: 19970428
  11. NOVOLIN R [Concomitant]
     Active Substance: INSULIN HUMAN
     Indication: DIABETES MELLITUS
     Dosage: 5 U, BID
     Route: 064
     Dates: start: 19970121
  12. NOVOLIN R [Concomitant]
     Active Substance: INSULIN HUMAN
     Dosage: 16 U, PRE-LUNCH
     Route: 064
     Dates: start: 19970428
  13. NOVOLIN N [Concomitant]
     Active Substance: INSULIN HUMAN
     Indication: DIABETES MELLITUS
     Dosage: 12 U, EACH MORNING
     Route: 064
     Dates: start: 19970121
  14. VENTOLIN [Concomitant]
     Active Substance: ALBUTEROL SULFATE
     Dosage: UNK, PRN
     Route: 064

REACTIONS (4)
  - Foetal exposure during pregnancy [Recovered/Resolved]
  - Cardiac murmur [Unknown]
  - Spina bifida [Unknown]
  - Injury [Unknown]
